FAERS Safety Report 9401585 (Version 1)
Quarter: 2013Q3

REPORT INFORMATION
  Report Type: Spontaneous
  Country: US (occurrence: US)
  Receive Date: 20130716
  Receipt Date: 20130716
  Transmission Date: 20140515
  Serious: Yes (Other)
  Sender: FDA-Public Use
  Company Number: US-BRISTOL-MYERS SQUIBB COMPANY-19088350

PATIENT
  Age: 54 Year
  Sex: Female
  Weight: 69.39 kg

DRUGS (13)
  1. SPRYCEL [Suspect]
     Indication: CHRONIC MYELOID LEUKAEMIA
     Route: 048
     Dates: start: 20130430
  2. ELIQUIS [Suspect]
  3. PLAVIX [Suspect]
  4. ALLOPURINOL [Concomitant]
  5. ACETYLSALICYLIC ACID [Concomitant]
  6. DIGOXIN [Concomitant]
  7. POTASSIUM [Concomitant]
  8. COLACE [Concomitant]
  9. LIPITOR [Concomitant]
  10. PRILOSEC [Concomitant]
  11. LASIX [Concomitant]
  12. FERROUS SULFATE [Concomitant]
  13. CARVEDILOL [Concomitant]

REACTIONS (7)
  - Melaena [Not Recovered/Not Resolved]
  - Anaemia [Not Recovered/Not Resolved]
  - Weight decreased [Not Recovered/Not Resolved]
  - Alopecia [Not Recovered/Not Resolved]
  - Diarrhoea [Not Recovered/Not Resolved]
  - Fatigue [Not Recovered/Not Resolved]
  - Rash pruritic [Not Recovered/Not Resolved]
